FAERS Safety Report 23492391 (Version 1)
Quarter: 2024Q1

REPORT INFORMATION
  Report Type: Spontaneous
  Country: FR (occurrence: FR)
  Receive Date: 20240207
  Receipt Date: 20240207
  Transmission Date: 20240409
  Serious: Yes (Hospitalization)
  Sender: FDA-Public Use
  Company Number: None

PATIENT
  Age: 82 Year
  Sex: Female

DRUGS (4)
  1. PREDNISOLONE [Suspect]
     Active Substance: PREDNISOLONE
     Indication: Prosthetic cardiac valve calcification
     Route: 048
     Dates: start: 20231109
  2. PREDNISOLONE [Suspect]
     Active Substance: PREDNISOLONE
     Indication: Prosthetic cardiac valve calcification
     Route: 048
     Dates: start: 20231019, end: 20231027
  3. PREDNISOLONE [Suspect]
     Active Substance: PREDNISOLONE
     Indication: Prosthetic cardiac valve calcification
     Route: 048
     Dates: start: 20231027, end: 20231109
  4. TRAMADOL HYDROCHLORIDE [Suspect]
     Active Substance: TRAMADOL HYDROCHLORIDE
     Indication: Pain
     Dosage: 50 MG 3XD
     Route: 048
     Dates: start: 20231019

REACTIONS (1)
  - Thrombocytopenia [Not Recovered/Not Resolved]

NARRATIVE: CASE EVENT DATE: 20231107
